FAERS Safety Report 4383248-4 (Version None)
Quarter: 2004Q2

REPORT INFORMATION
  Report Type: 
  Country: None (occurrence: None)
  Receive Date: 20040618
  Receipt Date: 20040609
  Transmission Date: 20050107
  Serious: Yes (Other)
  Sender: FDA-Public Use
  Company Number: 2004-06-0428

PATIENT
  Age: 35 Year
  Sex: Female

DRUGS (3)
  1. AERIUS (DESLORATADINE) TABLETS 'LIKE CLARINEX' [Suspect]
     Indication: HYPERSENSITIVITY
     Dosage: 5 MG QD ORAL
     Route: 048
     Dates: start: 20040524, end: 20040605
  2. AMINOBENZOIC ACID TABLETS [Suspect]
     Indication: PHOTOSENSITIVITY REACTION
     Dosage: 2 TAB TID ORAL
     Route: 048
     Dates: start: 20040524
  3. AMINOBENZOIC ACID TABLETS [Suspect]
     Indication: PROPHYLAXIS
     Dosage: 2 TAB TID ORAL
     Route: 048
     Dates: start: 20040524

REACTIONS (6)
  - CONDITION AGGRAVATED [None]
  - DYSPNOEA [None]
  - HEART RATE IRREGULAR [None]
  - PALPITATIONS [None]
  - SENSORY DISTURBANCE [None]
  - WEIGHT INCREASED [None]
